FAERS Safety Report 12001304 (Version 1)
Quarter: 2016Q1

REPORT INFORMATION
  Report Type: Spontaneous
  Country: JP (occurrence: JP)
  Receive Date: 20160204
  Receipt Date: 20160204
  Transmission Date: 20160526
  Serious: Yes (Other)
  Sender: FDA-Public Use
  Company Number: JP-ELI_LILLY_AND_COMPANY-JP201602000388

PATIENT
  Age: 35 Year
  Sex: Male

DRUGS (4)
  1. EDIROL [Concomitant]
     Active Substance: ELDECALCITOL
  2. LORAZEPAM. [Concomitant]
     Active Substance: LORAZEPAM
  3. FORTEO [Suspect]
     Active Substance: TERIPARATIDE
     Indication: PRODUCT USED FOR UNKNOWN INDICATION
     Dosage: UNK
     Route: 058
     Dates: start: 201512
  4. ASACOL [Concomitant]
     Active Substance: MESALAMINE

REACTIONS (1)
  - Seizure [Recovered/Resolved]

NARRATIVE: CASE EVENT DATE: 201601
